FAERS Safety Report 7002292-1 (Version None)
Quarter: 2010Q3

REPORT INFORMATION
  Report Type: 
  Country: None (occurrence: None)
  Receive Date: 20100920
  Receipt Date: 20100104
  Transmission Date: 20110219
  Serious: No
  Sender: FDA-Public Use
  Company Number: US-ASTRAZENECA-2009SE31606

PATIENT
  Sex: Female

DRUGS (22)
  1. SEROQUEL XR [Suspect]
     Route: 048
  2. EMBREL [Concomitant]
     Indication: RHEUMATOID ARTHRITIS
     Route: 030
  3. CELEBREX [Concomitant]
     Indication: RHEUMATOID ARTHRITIS
     Route: 048
  4. AZULFIDINE [Concomitant]
     Indication: RHEUMATOID ARTHRITIS
     Dosage: 1 GM TWO TIMES A DAY
  5. ROXICET [Concomitant]
     Indication: RHEUMATOID ARTHRITIS
     Dosage: 1-2 TABLETS 4-6 HOURS AS NEEDED
     Route: 048
  6. MS 04 [Concomitant]
     Indication: RHEUMATOID ARTHRITIS
     Dosage: 5 MG 4-6 HOURS AS NEEDED
     Route: 048
  7. PLAQUENIL [Concomitant]
     Indication: RHEUMATOID ARTHRITIS
     Route: 048
  8. PREDNISONE [Concomitant]
     Indication: RHEUMATOID ARTHRITIS
     Dosage: 1-4 MG AS NEEDED
     Route: 048
  9. BUDEPRION [Concomitant]
     Indication: RHEUMATOID ARTHRITIS
     Route: 048
  10. ALPRAZOLAM [Concomitant]
     Indication: RHEUMATOID ARTHRITIS
     Route: 048
  11. ALPRAZOLAM [Concomitant]
     Indication: ANXIETY
     Route: 048
  12. RESTORIL [Concomitant]
     Indication: RHEUMATOID ARTHRITIS
     Route: 048
  13. RESTORIL [Concomitant]
     Indication: SLEEP DISORDER
     Route: 048
  14. AZOR [Concomitant]
     Indication: RHEUMATOID ARTHRITIS
     Dosage: 5 MG/20 MG
  15. PREMARIN [Concomitant]
     Indication: HORMONE REPLACEMENT THERAPY
     Route: 048
  16. ACTONEL [Concomitant]
     Indication: HORMONE REPLACEMENT THERAPY
     Route: 048
  17. MULTI VIT. [Concomitant]
     Dosage: TWO TIMES A DAY
     Route: 048
  18. FISH OIL [Concomitant]
     Route: 048
  19. CALCIUM [Concomitant]
     Route: 048
  20. MAGNESIUM [Concomitant]
     Route: 048
  21. ZINC [Concomitant]
     Dosage: 500
     Route: 048
  22. VITAMIN B COMPLEX CAP [Concomitant]
     Dosage: DAILY
     Route: 048

REACTIONS (2)
  - DROOLING [None]
  - LIP DISORDER [None]
